FAERS Safety Report 21931291 (Version 2)
Quarter: 2025Q2

REPORT INFORMATION
  Report Type: Spontaneous
  Country: US (occurrence: US)
  Receive Date: 20230131
  Receipt Date: 20250531
  Transmission Date: 20250717
  Serious: No
  Sender: CIPLA
  Company Number: US-CIPLA LTD.-2023US00126

PATIENT

DRUGS (3)
  1. ALBUTEROL [Suspect]
     Active Substance: ALBUTEROL
     Indication: Dyspnoea
     Dates: start: 202212
  2. ALBUTEROL [Suspect]
     Active Substance: ALBUTEROL
     Indication: Wheezing
  3. ALBUTEROL [Suspect]
     Active Substance: ALBUTEROL
     Indication: Cough

REACTIONS (2)
  - Oral discomfort [Unknown]
  - Device defective [Unknown]

NARRATIVE: CASE EVENT DATE: 20221201
